FAERS Safety Report 9459217 (Version 2)
Quarter: 2015Q2

REPORT INFORMATION
  Report Type: Spontaneous
  Country: RS (occurrence: RS)
  Receive Date: 20130814
  Receipt Date: 20150505
  Transmission Date: 20150821
  Serious: Yes (Other)
  Sender: FDA-Public Use
  Company Number: PHHY2013RS081130

PATIENT
  Age: 34 Year
  Sex: Female

DRUGS (5)
  1. HEPARIN [Suspect]
     Active Substance: HEPARIN SODIUM
     Indication: THROMBOLYSIS
     Route: 042
  2. DANAPAROID [Suspect]
     Active Substance: DANAPAROID
     Indication: ANTICOAGULANT THERAPY
     Dosage: 750 IU, Q12H
     Route: 058
  3. ACENOCOUMAROL [Suspect]
     Active Substance: ACENOCOUMAROL
     Indication: ANTICOAGULANT THERAPY
     Route: 048
  4. LEPIRUDIN [Suspect]
     Active Substance: LEPIRUDIN
     Indication: PRODUCT USED FOR UNKNOWN INDICATION
     Route: 042
  5. ALTEPLASE [Suspect]
     Active Substance: ALTEPLASE
     Indication: THROMBOLYSIS
     Route: 065

REACTIONS (4)
  - Maternal exposure during pregnancy [Unknown]
  - Thrombosis [Recovering/Resolving]
  - Premature labour [Unknown]
  - Heparin-induced thrombocytopenia [Recovering/Resolving]
